FAERS Safety Report 5506964-7 (Version None)
Quarter: 2007Q4

REPORT INFORMATION
  Report Type: 
  Country: None (occurrence: None)
  Receive Date: 20071102
  Receipt Date: 20071018
  Transmission Date: 20080405
  Serious: Yes (Other)
  Sender: FDA-Public Use
  Company Number: SPV1-2007-04634

PATIENT
  Age: 26 Year
  Sex: Female
  Weight: 65.8 kg

DRUGS (2)
  1. ADDERAL XR (AMPHETAMINE ASPARTATE, AMPHETAMINE SULFATE, DEXTROAMPHETAM [Suspect]
     Indication: ATTENTION DEFICIT/HYPERACTIVITY DISORDER
     Dosage: 15 MG, 1X/DAY:QD, ORAL;1/3 OF A 15 MG CAPSULE, 1X/DAY:QD, ORAL
     Route: 048
     Dates: start: 20070627, end: 20071012
  2. ADDERAL XR (AMPHETAMINE ASPARTATE, AMPHETAMINE SULFATE, DEXTROAMPHETAM [Suspect]
     Indication: ATTENTION DEFICIT/HYPERACTIVITY DISORDER
     Dosage: 15 MG, 1X/DAY:QD, ORAL;1/3 OF A 15 MG CAPSULE, 1X/DAY:QD, ORAL
     Route: 048
     Dates: start: 20071016, end: 20071017

REACTIONS (9)
  - ANOREXIA [None]
  - CHILLS [None]
  - CHROMATURIA [None]
  - DIARRHOEA [None]
  - FEELING HOT [None]
  - HYPOVOLAEMIA [None]
  - INSOMNIA [None]
  - THIRST [None]
  - VOMITING [None]
